FAERS Safety Report 6394012-9 (Version None)
Quarter: 2009Q4

REPORT INFORMATION
  Report Type: 
  Country: None (occurrence: None)
  Receive Date: 20091008
  Receipt Date: 20090924
  Transmission Date: 20100525
  Serious: Yes (Hospitalization, Other)
  Sender: FDA-Public Use
  Company Number: PHHY2009CL28041

PATIENT
  Age: 67 Year
  Sex: Male

DRUGS (2)
  1. TAREG D [Suspect]
     Indication: HYPERTENSION
     Dosage: 1 DF (160/12.5 MG) PER DAY
  2. ATORVASTATIN [Concomitant]

REACTIONS (3)
  - ANGINA PECTORIS [None]
  - CORONARY ARTERY BYPASS [None]
  - CORONARY ARTERY INSUFFICIENCY [None]
